FAERS Safety Report 8314168-8 (Version None)
Quarter: 2012Q2

REPORT INFORMATION
  Report Type: 
  Country: None (occurrence: None)
  Receive Date: 20120424
  Receipt Date: 20120412
  Transmission Date: 20120825
  Serious: Yes (Other)
  Sender: FDA-Public Use
  Company Number: 2012SP019761

PATIENT
  Sex: Male

DRUGS (1)
  1. SAPHRIS [Suspect]
     Dosage: SL
     Route: 060
     Dates: start: 20120412

REACTIONS (4)
  - TONGUE DISORDER [None]
  - SENSORY DISTURBANCE [None]
  - UNRESPONSIVE TO STIMULI [None]
  - SPEECH DISORDER [None]
